FAERS Safety Report 20767908 (Version 1)
Quarter: 2022Q2

REPORT INFORMATION
  Report Type: Other
  Country: CN (occurrence: None)
  Receive Date: 20220429
  Receipt Date: 20220429
  Transmission Date: 20220721
  Serious: Yes (Other)
  Sender: FDA-Public Use
  Company Number: CN-ROCHE-3081478

PATIENT
  Sex: Male

DRUGS (3)
  1. TECENTRIQ [Suspect]
     Active Substance: ATEZOLIZUMAB
     Indication: Hepatic cancer
     Dosage: IMMUNOTHERAPY (1200MG/20ML/VIAL, INJECTION)
     Route: 041
     Dates: start: 20220314
  2. AVASTIN [Suspect]
     Active Substance: BEVACIZUMAB
     Indication: Hepatic neoplasm
     Dosage: 100MG(4ML)/VIAL/BOX, INJECTION
     Route: 041
     Dates: start: 20220314, end: 2022
  3. LENVATINIB [Concomitant]
     Active Substance: LENVATINIB
     Indication: Hepatic cancer
     Dosage: IMMUNOTHERAPY

REACTIONS (2)
  - Haematemesis [Not Recovered/Not Resolved]
  - Abdominal pain upper [Not Recovered/Not Resolved]

NARRATIVE: CASE EVENT DATE: 20220412
